FAERS Safety Report 18119857 (Version 18)
Quarter: 2023Q1

REPORT INFORMATION
  Report Type: Report from Study
  Country: US (occurrence: US)
  Receive Date: 20200806
  Receipt Date: 20230321
  Transmission Date: 20230417
  Serious: Yes (Other)
  Sender: FDA-Public Use
  Company Number: US-SHIRE-US202025411

PATIENT
  Age: 39 Year
  Sex: Female
  Weight: 60 kg

DRUGS (26)
  1. HUMAN IMMUNOGLOBULIN G [Suspect]
     Active Substance: HUMAN IMMUNOGLOBULIN G
     Indication: Immunodeficiency common variable
     Dosage: 13 GRAM, 1/WEEK
     Route: 058
     Dates: start: 20200720
  2. HUMAN IMMUNOGLOBULIN G [Suspect]
     Active Substance: HUMAN IMMUNOGLOBULIN G
     Indication: Primary immunodeficiency syndrome
     Dosage: 13 GRAM, 1/WEEK
     Route: 058
     Dates: start: 20200730
  3. HUMAN IMMUNOGLOBULIN G [Suspect]
     Active Substance: HUMAN IMMUNOGLOBULIN G
     Dosage: 13 GRAM, 1/WEEK
     Route: 058
     Dates: start: 20200826
  4. HUMAN IMMUNOGLOBULIN G [Suspect]
     Active Substance: HUMAN IMMUNOGLOBULIN G
     Dosage: 13 GRAM, 1/WEEK
     Route: 058
     Dates: start: 20200924
  5. HUMAN IMMUNOGLOBULIN G [Suspect]
     Active Substance: HUMAN IMMUNOGLOBULIN G
     Dosage: UNK, 1/WEEK
     Route: 058
     Dates: start: 20200924
  6. ALBUTEROL SULFATE [Concomitant]
     Active Substance: ALBUTEROL SULFATE
     Dosage: UNK
  7. KEPPRA [Concomitant]
     Active Substance: LEVETIRACETAM
     Indication: Seizure
     Dosage: UNK
     Route: 065
  8. VITAMIN C [Concomitant]
     Active Substance: ASCORBIC ACID
     Dosage: UNK
  9. PRED FORTE [Concomitant]
     Active Substance: PREDNISOLONE ACETATE
     Dosage: UNK
  10. SERTRALINE HYDROCHLORIDE [Concomitant]
     Active Substance: SERTRALINE HYDROCHLORIDE
     Dosage: UNK
  11. MOMETASONE FUROATE [Concomitant]
     Active Substance: MOMETASONE FUROATE
     Dosage: UNK
  12. HYDROCHLOROTHIAZIDE [Concomitant]
     Active Substance: HYDROCHLOROTHIAZIDE
     Dosage: UNK
  13. XANAX [Concomitant]
     Active Substance: ALPRAZOLAM
     Dosage: UNK
  14. DIFLUCAN [Concomitant]
     Active Substance: FLUCONAZOLE
     Dosage: UNK
  15. PROAIR HFA [Concomitant]
     Active Substance: ALBUTEROL SULFATE
     Dosage: UNK
  16. XYZAL [Concomitant]
     Active Substance: LEVOCETIRIZINE DIHYDROCHLORIDE
     Dosage: UNK
  17. MUCINEX [Concomitant]
     Active Substance: GUAIFENESIN
     Dosage: UNK
  18. MONTELUKAST SODIUM [Concomitant]
     Active Substance: MONTELUKAST SODIUM
     Dosage: UNK
  19. AMLODIPINE BESYLATE [Concomitant]
     Active Substance: AMLODIPINE BESYLATE
  20. ACETAMINOPHEN [Concomitant]
     Active Substance: ACETAMINOPHEN
  21. DIPHENHYDRAMINE [Concomitant]
     Active Substance: DIPHENHYDRAMINE
  22. EPINEPHRINE [Concomitant]
     Active Substance: EPINEPHRINE
  23. Lmx [Concomitant]
  24. CALCIUM [Concomitant]
     Active Substance: CALCIUM
  25. Sinus relief [Concomitant]
  26. TRI LO ESTARYLLA [Concomitant]

REACTIONS (18)
  - Brain neoplasm [Unknown]
  - Seizure [Unknown]
  - Influenza [Unknown]
  - Blood potassium decreased [Unknown]
  - Vitamin B12 decreased [Unknown]
  - Blood iron decreased [Unknown]
  - Joint injury [Unknown]
  - Sinusitis [Unknown]
  - Nausea [Unknown]
  - Injection site pruritus [Unknown]
  - Infusion site pain [Unknown]
  - Middle ear effusion [Unknown]
  - Sinus disorder [Unknown]
  - Candida infection [Unknown]
  - Tooth abscess [Unknown]
  - Insurance issue [Unknown]
  - Accident [Unknown]
  - Back pain [Unknown]

NARRATIVE: CASE EVENT DATE: 20200921
